FAERS Safety Report 22097005 (Version 6)
Quarter: 2023Q2

REPORT INFORMATION
  Report Type: Report from Study
  Country: US (occurrence: US)
  Receive Date: 20230315
  Receipt Date: 20230613
  Transmission Date: 20230721
  Serious: Yes (Other)
  Sender: FDA-Public Use
  Company Number: US-002147023-NVSC2023US054262

PATIENT
  Sex: Male

DRUGS (1)
  1. ENTRESTO [Suspect]
     Active Substance: SACUBITRIL\VALSARTAN
     Indication: Product used for unknown indication
     Dosage: 1 DOSAGE FORM, BID (24/26 MG)
     Route: 048

REACTIONS (12)
  - Erosive oesophagitis [Unknown]
  - Orthopnoea [Recovering/Resolving]
  - Dyspnoea [Not Recovered/Not Resolved]
  - Illness [Unknown]
  - Dizziness postural [Not Recovered/Not Resolved]
  - Nausea [Unknown]
  - Fatigue [Unknown]
  - Dizziness [Unknown]
  - Hypersensitivity [Unknown]
  - Presyncope [Unknown]
  - Hypotension [Unknown]
  - Cough [Not Recovered/Not Resolved]
